FAERS Safety Report 13081502 (Version 1)
Quarter: 2016Q4

REPORT INFORMATION
  Report Type: Spontaneous
  Country: US (occurrence: US)
  Receive Date: 20161230
  Receipt Date: 20161230
  Transmission Date: 20170207
  Serious: Yes (Hospitalization)
  Sender: FDA-Public Use
  Company Number: None

PATIENT
  Age: 37 Year
  Sex: Male
  Weight: 98 kg

DRUGS (7)
  1. DAUNORUBICIN [Suspect]
     Active Substance: DAUNORUBICIN
     Dates: end: 20161205
  2. METHOTREXATE. [Suspect]
     Active Substance: METHOTREXATE
     Dates: end: 20161205
  3. DEXAMETHASONE. [Suspect]
     Active Substance: DEXAMETHASONE
     Dates: end: 20161206
  4. CYTARABINE. [Suspect]
     Active Substance: CYTARABINE
     Dates: end: 20161118
  5. VANCOMYCIN [Concomitant]
     Active Substance: VANCOMYCIN
  6. VINCRISTINE SULFATE. [Suspect]
     Active Substance: VINCRISTINE SULFATE
     Dates: end: 20161205
  7. AMBISOME [Concomitant]
     Active Substance: AMPHOTERICIN B

REACTIONS (10)
  - Infection [None]
  - Azotaemia [None]
  - Renal failure [None]
  - Hypotension [None]
  - Acid base balance abnormal [None]
  - Multiple organ dysfunction syndrome [None]
  - Fungal sepsis [None]
  - Metabolic acidosis [None]
  - Somnolence [None]
  - Slow speech [None]

NARRATIVE: CASE EVENT DATE: 20161206
